FAERS Safety Report 7704096-0 (Version None)
Quarter: 2011Q3

REPORT INFORMATION
  Report Type: 
  Country: None (occurrence: None)
  Receive Date: 20110823
  Receipt Date: 20110819
  Transmission Date: 20111222
  Serious: Yes (Other)
  Sender: FDA-Public Use
  Company Number: US-SANOFI-AVENTIS-2011SA053236

PATIENT
  Age: 81 Year
  Sex: Female

DRUGS (4)
  1. ADVAIR DISKUS 100/50 [Concomitant]
  2. CELEBREX [Concomitant]
  3. PLAVIX [Suspect]
     Route: 048
     Dates: start: 20080101
  4. SPIRIVA [Concomitant]

REACTIONS (2)
  - THROMBOSIS [None]
  - PAIN IN EXTREMITY [None]
